FAERS Safety Report 24026069 (Version 4)
Quarter: 2024Q3

REPORT INFORMATION
  Report Type: Report from Study
  Country: TR (occurrence: TR)
  Receive Date: 20240628
  Receipt Date: 20240710
  Transmission Date: 20241017
  Serious: No
  Sender: ROCHE
  Company Number: TR-ROCHE-3475176

PATIENT
  Age: 73 Year
  Sex: Female

DRUGS (6)
  1. ALECTINIB [Suspect]
     Active Substance: ALECTINIB
     Indication: Non-small cell lung cancer metastatic
     Route: 048
     Dates: start: 20230411
  2. FUROMID [Concomitant]
     Dosage: 20 MG/2 ML, 1 AMPULE
     Route: 042
     Dates: start: 20240323, end: 20240328
  3. GADEXON [Concomitant]
     Indication: Oedema
     Dosage: 8MG/ML, 1 AMPULE
     Route: 042
     Dates: start: 20240324, end: 20240401
  4. PARACEROL [Concomitant]
     Indication: Pain
     Dosage: 1 AMPULE, 10 MG/ML
     Route: 042
     Dates: start: 20240323, end: 20240404
  5. RAMADEX [Concomitant]
     Dosage: 100 MG / 2ML
     Route: 042
     Dates: start: 20240323, end: 20240331
  6. ZYGOSIS [Concomitant]
     Dosage: PROTON PUMP INHIBITOR(STOMACH PROTECTIVE)
     Route: 042
     Dates: start: 20240323, end: 20240331

REACTIONS (1)
  - Blood alkaline phosphatase increased [Recovered/Resolved]

NARRATIVE: CASE EVENT DATE: 20231208
